FAERS Safety Report 5535011-6 (Version None)
Quarter: 2007Q4

REPORT INFORMATION
  Report Type: 
  Country: None (occurrence: None)
  Receive Date: 20071205
  Receipt Date: 20071204
  Transmission Date: 20080405
  Serious: Yes (Hospitalization)
  Sender: FDA-Public Use
  Company Number: FR-MERCK-0712FRA00008

PATIENT
  Age: 45 Year
  Sex: Female

DRUGS (4)
  1. INVANZ [Suspect]
     Indication: ESCHAR
     Route: 042
     Dates: start: 20071108
  2. CEFTRIAXONE SODIUM [Suspect]
     Indication: ESCHAR
     Route: 051
     Dates: start: 20071106, end: 20071108
  3. AMIKACIN SULFATE [Suspect]
     Indication: ESCHAR
     Route: 042
     Dates: start: 20071106
  4. ONDANSETRON HYDROCHLORIDE [Suspect]
     Route: 051
     Dates: start: 20071106, end: 20071112

REACTIONS (2)
  - ACUTE GENERALISED EXANTHEMATOUS PUSTULOSIS [None]
  - PATHOGEN RESISTANCE [None]
